FAERS Safety Report 25066863 (Version 1)
Quarter: 2025Q1

REPORT INFORMATION
  Report Type: Report from Study
  Country: US (occurrence: US)
  Receive Date: 20250312
  Receipt Date: 20250312
  Transmission Date: 20250409
  Serious: Yes (Death)
  Sender: ULTRAGENYX PHARMACEUTICAL
  Company Number: US-ULTRAGENYX PHARMACEUTICAL INC.-US-UGX-25-00444

PATIENT
  Age: 4 Year
  Sex: Female

DRUGS (2)
  1. DOJOLVI [Suspect]
     Active Substance: TRIHEPTANOIN
     Indication: Very long-chain acyl-coenzyme A dehydrogenase deficiency
     Dosage: 15 MILLILITER, QID, WITH MEALS AND AT BEDTIME
     Route: 048
     Dates: start: 202212
  2. DOJOLVI [Suspect]
     Active Substance: TRIHEPTANOIN
     Dosage: 15 MILLILITER, QID
     Route: 048
     Dates: start: 20230309

REACTIONS (1)
  - Death [Fatal]

NARRATIVE: CASE EVENT DATE: 20250228
